FAERS Safety Report 11312848 (Version 1)
Quarter: 2015Q3

REPORT INFORMATION
  Report Type: Spontaneous
  Country: PL (occurrence: None)
  Receive Date: 20150724
  Receipt Date: 20150724
  Transmission Date: 20151125
  Serious: Yes (Hospitalization)
  Sender: FDA-Public Use
  Company Number: None

PATIENT
  Age: 47 Year
  Sex: Male
  Weight: 94 kg

DRUGS (4)
  1. DUALGEN-15 60 MINOXIDIL 15% [Concomitant]
  2. LISTERINE ORIGINAL [Concomitant]
     Active Substance: EUCALYPTOL\MENTHOL\METHYL SALICYLATE\THYMOL
  3. DUALGEN-15 [Suspect]
     Active Substance: AZELAIC ACID\CAFFEINE\MINOXIDIL\RETINOL
     Indication: HAIR DISORDER
     Dosage: 1ML, TWICE DAILY, APPLIED TO A SURFACE, USUALLY THE SKIN
  4. CREST TOOTHPASTE MINT [Concomitant]
     Indication: HAIR DISORDER

REACTIONS (4)
  - Blood pressure abnormal [None]
  - Loss of consciousness [None]
  - Myocardial infarction [None]
  - Road traffic accident [None]

NARRATIVE: CASE EVENT DATE: 20150610
